FAERS Safety Report 4351206-1 (Version None)
Quarter: 2004Q2

REPORT INFORMATION
  Report Type: 
  Country: None (occurrence: None)
  Receive Date: 20040428
  Receipt Date: 20030917
  Transmission Date: 20050107
  Serious: Yes (Death)
  Sender: FDA-Public Use
  Company Number: NSADSS2003022771

PATIENT
  Age: 74 Year
  Sex: Female

DRUGS (4)
  1. ULTRAM [Suspect]
     Indication: PAIN
     Dosage: 50 MG, 1 IN 1 DAY, ORAL; 50 MG, 2 IN 1 DAY, ORAL
     Route: 048
     Dates: start: 20020809, end: 20021114
  2. ULTRAM [Suspect]
     Indication: PAIN
     Dosage: 50 MG, 1 IN 1 DAY, ORAL; 50 MG, 2 IN 1 DAY, ORAL
     Route: 048
     Dates: start: 20021114
  3. PAXIL [Concomitant]
  4. PRINIVIL [Concomitant]

REACTIONS (1)
  - DEATH [None]
